FAERS Safety Report 4511281-8 (Version None)
Quarter: 2004Q4

REPORT INFORMATION
  Report Type: 
  Country: None (occurrence: None)
  Receive Date: 20041123
  Receipt Date: 20041123
  Transmission Date: 20050328
  Serious: No
  Sender: FDA-Public Use
  Company Number: None

PATIENT
  Age: 48 Year
  Sex: Female
  Weight: 79.3795 kg

DRUGS (4)
  1. CORICIDIN D (CHLORPHENIRAMINE/PHENYLPROPANOLAMINE/AS TABLETS [Suspect]
     Indication: NASOPHARYNGITIS
     Dosage: ONCE ORAL
     Route: 048
     Dates: start: 19990426, end: 19960426
  2. LASIX [Concomitant]
  3. PREMARIN [Concomitant]
  4. POTASSIUM SUPPLEMENT [Concomitant]

REACTIONS (7)
  - AMNESIA [None]
  - CEREBRAL ISCHAEMIA [None]
  - DIPLOPIA [None]
  - DYSARTHRIA [None]
  - FACIAL PALSY [None]
  - HEMIPARESIS [None]
  - INFARCTION [None]
